FAERS Safety Report 4498466-4 (Version None)
Quarter: 2004Q4

REPORT INFORMATION
  Report Type: 
  Country: None (occurrence: None)
  Receive Date: 20041105
  Receipt Date: 20041026
  Transmission Date: 20050328
  Serious: Yes (Hospitalization)
  Sender: FDA-Public Use
  Company Number: MK200411-0029-1

PATIENT
  Age: 49 Year
  Sex: Male

DRUGS (5)
  1. ANAFRANIL [Suspect]
     Dosage: 10-20MG, DAILY
     Dates: start: 20000801, end: 20040914
  2. HALCION [Suspect]
     Dates: start: 20030101
  3. ALTACTONE [Suspect]
  4. DUPHALAC [Concomitant]
  5. INDERAL [Concomitant]

REACTIONS (1)
  - HEPATOCELLULAR DAMAGE [None]
